FAERS Safety Report 11219267 (Version 1)
Quarter: 2015Q2

REPORT INFORMATION
  Report Type: Spontaneous
  Country: US (occurrence: US)
  Receive Date: 20150625
  Receipt Date: 20150625
  Transmission Date: 20150821
  Serious: No
  Sender: FDA-Public Use
  Company Number: US-TEVA-572567USA

PATIENT
  Sex: Female

DRUGS (1)
  1. CAMRESELO [Suspect]
     Active Substance: ETHINYL ESTRADIOL\LEVONORGESTREL
     Indication: CONTRACEPTION

REACTIONS (2)
  - Anxiety [Not Recovered/Not Resolved]
  - Product substitution issue [Unknown]
